FAERS Safety Report 23100498 (Version 1)
Quarter: 2023Q4

REPORT INFORMATION
  Report Type: Spontaneous
  Country: US (occurrence: None)
  Receive Date: 20231020
  Receipt Date: 20231020
  Transmission Date: 20240109
  Serious: Yes (Hospitalization)
  Sender: FDA-Public Use
  Company Number: None

PATIENT
  Age: 50 Year
  Sex: Male
  Weight: 108.8 kg

DRUGS (1)
  1. PEMBROLIZUMAB [Suspect]
     Active Substance: PEMBROLIZUMAB
     Dates: end: 20230927

REACTIONS (5)
  - Product use complaint [None]
  - Oropharyngeal pain [None]
  - Dyspnoea [None]
  - Refusal of treatment by patient [None]
  - Sleep apnoea syndrome [None]

NARRATIVE: CASE EVENT DATE: 20231012
